FAERS Safety Report 15714942 (Version 2)
Quarter: 2019Q1

REPORT INFORMATION
  Report Type: Spontaneous
  Country: US (occurrence: US)
  Receive Date: 20181212
  Receipt Date: 20190211
  Transmission Date: 20190417
  Serious: Yes (Other)
  Sender: FDA-Public Use
  Company Number: US-ENDO PHARMACEUTICALS INC-2018-043263

PATIENT
  Age: 32 Year
  Sex: Female

DRUGS (3)
  1. KETALAR [Suspect]
     Active Substance: KETAMINE HYDROCHLORIDE
     Indication: PRODUCT USED FOR UNKNOWN INDICATION
     Dosage: UNK UNKNOWN, UNKNOWN
     Route: 051
     Dates: start: 20180921
  2. KETALAR [Suspect]
     Active Substance: KETAMINE HYDROCHLORIDE
     Dosage: UNK UNKNOWN, UNKNOWN
     Route: 048
     Dates: end: 20180926
  3. ALL OTHER NON-THERAPEUTIC PRODUCTS [Suspect]
     Active Substance: UNSPECIFIED INGREDIENT
     Indication: PRODUCT USED FOR UNKNOWN INDICATION
     Route: 048

REACTIONS (6)
  - Overdose [Recovered/Resolved]
  - Loss of consciousness [Recovered/Resolved]
  - Amnesia [Unknown]
  - Victim of crime [Unknown]
  - Intentional product misuse [Unknown]
  - Confusional state [Recovered/Resolved]

NARRATIVE: CASE EVENT DATE: 20180921
